FAERS Safety Report 9316475 (Version 1)
Quarter: 2013Q2

REPORT INFORMATION
  Report Type: Report from Study
  Country: CA (occurrence: CA)
  Receive Date: 20130530
  Receipt Date: 20130530
  Transmission Date: 20140414
  Serious: Yes (Other)
  Sender: FDA-Public Use
  Company Number: CA-ROCHE-1230248

PATIENT
  Sex: Female
  Weight: 88.5 kg

DRUGS (4)
  1. XELODA [Suspect]
     Indication: COLON CANCER
     Route: 048
     Dates: start: 200912
  2. AVASTIN [Suspect]
     Indication: COLON CANCER
     Route: 042
     Dates: start: 200806, end: 2008
  3. DILAUDID [Suspect]
     Indication: PAIN
     Route: 065
     Dates: start: 201304, end: 201304
  4. OXYCODONE [Concomitant]

REACTIONS (5)
  - Lung disorder [Unknown]
  - Nausea [Recovering/Resolving]
  - Vomiting [Recovering/Resolving]
  - Swelling [Recovered/Resolved]
  - Rash [Recovered/Resolved]
